FAERS Safety Report 9198512 (Version 1)
Quarter: 2013Q1

REPORT INFORMATION
  Report Type: Spontaneous
  Country: BR (occurrence: BR)
  Receive Date: 20130329
  Receipt Date: 20130329
  Transmission Date: 20140127
  Serious: Yes (Death, Hospitalization)
  Sender: FDA-Public Use
  Company Number: PHHY2013BR029955

PATIENT
  Age: 84 Year
  Sex: Male

DRUGS (1)
  1. DIOVAN AMLO FIX [Suspect]
     Indication: HYPERTENSION
     Dosage: 160/5MG
     Route: 048

REACTIONS (3)
  - Small intestinal haemorrhage [Fatal]
  - Shock haemorrhagic [Fatal]
  - Memory impairment [Not Recovered/Not Resolved]
